FAERS Safety Report 5906033-8 (Version None)
Quarter: 2008Q4

REPORT INFORMATION
  Report Type: 
  Country: None (occurrence: None)
  Receive Date: 20081002
  Receipt Date: 20080929
  Transmission Date: 20090506
  Serious: Yes (Hospitalization)
  Sender: FDA-Public Use
  Company Number: DE-WYE-G02124008

PATIENT
  Sex: Female
  Weight: 80 kg

DRUGS (3)
  1. TREVILOR [Suspect]
     Dosage: OVERDOSE AMOUNT MAX. 10000 MG
     Route: 048
     Dates: start: 20080907, end: 20080907
  2. TOPIRAMATE [Suspect]
     Dosage: OVERDOSE AMOUNT MAX. 7500 MG
     Route: 048
     Dates: start: 20080907, end: 20080907
  3. MELPERONE [Suspect]
     Dosage: OVERDOSE AMOUNT MAX. 2500 MG
     Route: 048
     Dates: start: 20080907, end: 20080907

REACTIONS (6)
  - BLOOD LACTIC ACID INCREASED [None]
  - BLOOD POTASSIUM DECREASED [None]
  - C-REACTIVE PROTEIN INCREASED [None]
  - INTENTIONAL OVERDOSE [None]
  - SOMNOLENCE [None]
  - SUICIDE ATTEMPT [None]
